FAERS Safety Report 10883320 (Version 1)
Quarter: 2015Q1

REPORT INFORMATION
  Report Type: Spontaneous
  Country: US (occurrence: None)
  Receive Date: 20150226
  Receipt Date: 20150226
  Transmission Date: 20150721
  Serious: No
  Sender: FDA-Public Use
  Company Number: None

PATIENT
  Age: 43 Year
  Sex: Female
  Weight: 298 kg

DRUGS (1)
  1. ZIPRASIDONE [Suspect]
     Active Substance: ZIPRASIDONE
     Indication: BIPOLAR DISORDER
     Dosage: 2 PILLS

REACTIONS (5)
  - Anxiety [None]
  - Chills [None]
  - Abdominal discomfort [None]
  - Inappropriate schedule of drug administration [None]
  - Malaise [None]

NARRATIVE: CASE EVENT DATE: 20150224
